FAERS Safety Report 9269760 (Version 2)
Quarter: 2013Q2

REPORT INFORMATION
  Report Type: Report from Study
  Country: US (occurrence: US)
  Receive Date: 20130503
  Receipt Date: 20130516
  Transmission Date: 20140414
  Serious: Yes (Hospitalization)
  Sender: FDA-Public Use
  Company Number: US-ABBOTT-13P-163-1081440-00

PATIENT
  Age: 37 Year
  Sex: Female
  Weight: 123.49 kg

DRUGS (16)
  1. HUMIRA [Suspect]
     Indication: CROHN^S DISEASE
     Dates: start: 20121207
  2. PROAIR [Concomitant]
     Indication: ASTHMA
  3. VENTOLIN [Concomitant]
     Indication: ASTHMA
  4. SYMBICORT [Concomitant]
     Indication: ASTHMA
  5. APRISO [Concomitant]
     Indication: CROHN^S DISEASE
  6. SYNTHROID [Concomitant]
     Indication: HYPOTHYROIDISM
  7. CLONIDINE [Concomitant]
     Indication: HYPERTENSION
  8. LISINOPRIL [Concomitant]
     Indication: HYPERTENSION
  9. SEROQUEL [Concomitant]
     Indication: BIPOLAR DISORDER
  10. SEROQUEL [Concomitant]
     Indication: OBSESSIVE-COMPULSIVE DISORDER
  11. SONATA [Concomitant]
     Indication: BIPOLAR DISORDER
  12. SONATA [Concomitant]
     Indication: OBSESSIVE-COMPULSIVE DISORDER
  13. COGENTIN [Concomitant]
     Indication: BIPOLAR DISORDER
  14. COGENTIN [Concomitant]
     Indication: OBSESSIVE-COMPULSIVE DISORDER
  15. PERPHENAZINE [Concomitant]
     Indication: BIPOLAR DISORDER
  16. PERPHENAZINE [Concomitant]
     Indication: OBSESSIVE-COMPULSIVE DISORDER

REACTIONS (2)
  - Fall [Recovering/Resolving]
  - Lower limb fracture [Recovering/Resolving]
